FAERS Safety Report 7048288-5 (Version None)
Quarter: 2010Q4

REPORT INFORMATION
  Report Type: 
  Country: None (occurrence: None)
  Receive Date: 20101014
  Receipt Date: 20101014
  Transmission Date: 20110411
  Serious: No
  Sender: FDA-Public Use
  Company Number: None

PATIENT
  Age: 28 Year
  Sex: Male

DRUGS (1)
  1. TRAZODONE HCL [Suspect]
     Indication: SOMNOLENCE
     Dosage: 50-100 MG HS PRN PO
     Route: 048
     Dates: start: 20100823, end: 20101001

REACTIONS (1)
  - RASH [None]
